FAERS Safety Report 6850239-0 (Version None)
Quarter: 2010Q3

REPORT INFORMATION
  Report Type: 
  Country: None (occurrence: None)
  Receive Date: 20100716
  Receipt Date: 20071016
  Transmission Date: 20110219
  Serious: No
  Sender: FDA-Public Use
  Company Number: US-PFIZER INC-2007086913

PATIENT
  Sex: Female
  Weight: 61.4 kg

DRUGS (3)
  1. CHANTIX [Suspect]
     Indication: SMOKING CESSATION THERAPY
     Dates: start: 20071001, end: 20071001
  2. ALBUTEROL [Concomitant]
     Indication: ASTHMA
     Route: 055
  3. PRILOSEC [Concomitant]
     Indication: HIATUS HERNIA

REACTIONS (1)
  - MYALGIA [None]
